FAERS Safety Report 5786153-1 (Version None)
Quarter: 2008Q2

REPORT INFORMATION
  Report Type: 
  Country: None (occurrence: None)
  Receive Date: 20080624
  Receipt Date: 20080618
  Transmission Date: 20081010
  Serious: Yes (Hospitalization)
  Sender: FDA-Public Use
  Company Number: A0727956A

PATIENT
  Age: 52 Year
  Sex: Male
  Weight: 77.3 kg

DRUGS (13)
  1. COREG [Suspect]
     Indication: DRUG USE FOR UNKNOWN INDICATION
     Dosage: 12.5MG TWICE PER DAY
     Route: 065
  2. ZOFRAN [Suspect]
     Indication: DRUG USE FOR UNKNOWN INDICATION
     Route: 065
  3. TEMODAR [Suspect]
     Indication: GLIOBLASTOMA MULTIFORME
     Dosage: 145MG PER DAY
     Route: 048
     Dates: start: 20080317, end: 20080428
  4. RADIATION [Suspect]
     Indication: GLIOBLASTOMA MULTIFORME
     Dosage: 2GY CYCLIC
     Route: 061
  5. ZETIA [Suspect]
     Indication: DRUG USE FOR UNKNOWN INDICATION
     Dosage: 10MG PER DAY
  6. PREVACID [Suspect]
     Indication: DRUG USE FOR UNKNOWN INDICATION
     Dosage: 30MG PER DAY
  7. SYNTHROID [Suspect]
     Indication: DRUG USE FOR UNKNOWN INDICATION
     Dosage: 150MCG PER DAY
  8. PERCOCET [Suspect]
     Indication: DRUG USE FOR UNKNOWN INDICATION
  9. HYDROXYZINE [Suspect]
     Indication: DRUG USE FOR UNKNOWN INDICATION
     Dosage: 10MG FOUR TIMES PER DAY
  10. CLOTRIMAZOLE [Suspect]
     Indication: DRUG USE FOR UNKNOWN INDICATION
     Dosage: 5UNIT PER DAY
  11. ZOCOR [Suspect]
     Indication: DRUG USE FOR UNKNOWN INDICATION
     Dosage: 40MG PER DAY
  12. DILANTIN [Suspect]
     Indication: DRUG USE FOR UNKNOWN INDICATION
  13. DECADRON [Concomitant]
     Dates: end: 20080415

REACTIONS (5)
  - ABDOMINAL PAIN [None]
  - HYPERSENSITIVITY [None]
  - RASH PRURITIC [None]
  - RENAL INFARCT [None]
  - SPLENIC INFARCTION [None]
